FAERS Safety Report 25609106 (Version 1)
Quarter: 2025Q3

REPORT INFORMATION
  Report Type: Spontaneous
  Country: US (occurrence: US)
  Receive Date: 20250727
  Receipt Date: 20250727
  Transmission Date: 20251021
  Serious: No
  Sender: SANOFI AVENTIS
  Company Number: US-SA-2025SA213209

PATIENT
  Sex: Male
  Weight: 63.64 kg

DRUGS (26)
  1. DUPIXENT [Suspect]
     Active Substance: DUPILUMAB
     Indication: Product used for unknown indication
     Dosage: 300 MG, QOW
     Route: 058
  2. AZATHIOPRINE [Concomitant]
     Active Substance: AZATHIOPRINE
  3. OMEPRAZOLE [Concomitant]
     Active Substance: OMEPRAZOLE
  4. PLAQUENIL [Concomitant]
     Active Substance: HYDROXYCHLOROQUINE SULFATE
  5. SULFASALAZINE [Concomitant]
     Active Substance: SULFASALAZINE
  6. SYSTANE (HYPROMELLOSE 2910 (4000 MPA.S)) [Concomitant]
     Active Substance: HYPROMELLOSE 2910 (4000 MPA.S)
  7. Brimonidine tartrate;Timolol [Concomitant]
  8. LATANOPROST [Concomitant]
     Active Substance: LATANOPROST
  9. PRASTERONE [Concomitant]
     Active Substance: PRASTERONE
  10. Cyto-q [Concomitant]
  11. GARLIC [Concomitant]
     Active Substance: GARLIC
  12. CIALIS [Concomitant]
     Active Substance: TADALAFIL
  13. ANDROGEL [Concomitant]
     Active Substance: TESTOSTERONE
  14. MICARDIS [Concomitant]
     Active Substance: TELMISARTAN
  15. CYTOMEL [Concomitant]
     Active Substance: LIOTHYRONINE SODIUM
  16. SYNTHROID [Concomitant]
     Active Substance: LEVOTHYROXINE SODIUM
  17. RYBELSUS [Concomitant]
     Active Substance: SEMAGLUTIDE
  18. Semglee [Concomitant]
  19. PROZAC [Concomitant]
     Active Substance: FLUOXETINE HYDROCHLORIDE
  20. JANUMET [Concomitant]
     Active Substance: METFORMIN HYDROCHLORIDE\SITAGLIPTIN PHOSPHATE
  21. ZINC [Concomitant]
     Active Substance: ZINC
  22. AQUAPHOR [Concomitant]
     Active Substance: PETROLATUM
  23. ZYRTEC [Concomitant]
     Active Substance: CETIRIZINE HYDROCHLORIDE
  24. ALBUTEROL SULFATE [Concomitant]
     Active Substance: ALBUTEROL SULFATE
  25. ASMANEX HFA [Concomitant]
     Active Substance: MOMETASONE FUROATE
  26. BEVESPI AEROSPHERE [Concomitant]
     Active Substance: FORMOTEROL FUMARATE\GLYCOPYRROLATE

REACTIONS (2)
  - Coagulopathy [Not Recovered/Not Resolved]
  - Injection site pain [Not Recovered/Not Resolved]

NARRATIVE: CASE EVENT DATE: 20240101
